FAERS Safety Report 8554173-X (Version None)
Quarter: 2012Q3

REPORT INFORMATION
  Report Type: 
  Country: None (occurrence: None)
  Receive Date: 20120731
  Receipt Date: 20120720
  Transmission Date: 20120928
  Serious: Yes (Hospitalization)
  Sender: FDA-Public Use
  Company Number: FR-009507513-1207FRA008680

PATIENT

DRUGS (13)
  1. RIVOTRIL [Concomitant]
     Dosage: UNK
  2. IMOVANE [Concomitant]
     Dosage: 1 DF, QD
  3. VICTRELIS [Suspect]
     Indication: HEPATITIS C
     Dosage: 800 MG, TID
     Dates: start: 20120514, end: 20120712
  4. COPEGUS [Suspect]
     Dosage: 400 MG, QD
     Dates: start: 20120531, end: 20120712
  5. VICTAN [Concomitant]
     Dosage: 0.5 DF, QD
  6. PEGASYS [Suspect]
     Indication: HEPATITIS C
     Dosage: 180 MICROGRAM, QW
     Dates: start: 20120416, end: 20120712
  7. TRAMADOL HCL [Concomitant]
     Dosage: 1 DF, QD
  8. ESCITALOPRAM [Concomitant]
     Dosage: 10 MG, QD
  9. COPEGUS [Suspect]
     Dosage: 600 MG, QD
     Dates: start: 20120515, end: 20120530
  10. LYRICA [Concomitant]
     Dosage: 300 MG, QD
  11. RASILEZ [Concomitant]
     Dosage: 150 MG, QD
  12. COPEGUS [Suspect]
     Indication: HEPATITIS C
     Dosage: 800 MG, QD
     Dates: start: 20120502, end: 20120514
  13. LEXOMIL [Concomitant]
     Dosage: 0.25 DF, QD

REACTIONS (3)
  - MAJOR DEPRESSION [None]
  - ASTHENIA [None]
  - CYSTITIS [None]
